FAERS Safety Report 24315247 (Version 3)
Quarter: 2025Q3

REPORT INFORMATION
  Report Type: Report from Study
  Country: US (occurrence: US)
  Receive Date: 20240913
  Receipt Date: 20250816
  Transmission Date: 20251021
  Serious: No
  Sender: ALEXION PHARMACEUTICALS
  Company Number: US-AstraZeneca-CH-00700121A

PATIENT
  Age: 73 Year
  Sex: Female

DRUGS (1)
  1. STRENSIQ [Suspect]
     Active Substance: ASFOTASE ALFA
     Indication: Hypophosphatasia
     Route: 065

REACTIONS (9)
  - Pruritus [Recovering/Resolving]
  - Pain in extremity [Not Recovered/Not Resolved]
  - Dysstasia [Unknown]
  - Anxiety [Unknown]
  - Depression [Unknown]
  - Brain fog [Unknown]
  - Injection site bruising [Recovered/Resolved]
  - Walking aid user [Not Recovered/Not Resolved]
  - Injection site pain [Unknown]
